FAERS Safety Report 13775779 (Version 1)
Quarter: 2017Q3

REPORT INFORMATION
  Report Type: Spontaneous
  Country: BR (occurrence: BR)
  Receive Date: 20170721
  Receipt Date: 20170721
  Transmission Date: 20171127
  Serious: Yes (Other)
  Sender: FDA-Public Use
  Company Number: BR-009507513-1707BRA008288

PATIENT
  Sex: Female

DRUGS (1)
  1. JANUMET [Suspect]
     Active Substance: METFORMIN HYDROCHLORIDE\SITAGLIPTIN PHOSPHATE
     Dosage: 1 TABLET (50/500 MG) AT LUNCH
     Route: 048

REACTIONS (2)
  - Inappropriate schedule of drug administration [Unknown]
  - Diabetes mellitus inadequate control [Unknown]
